FAERS Safety Report 19704515 (Version 2)
Quarter: 2021Q3

REPORT INFORMATION
  Report Type: Spontaneous
  Country: DE (occurrence: DE)
  Receive Date: 20210816
  Receipt Date: 20210823
  Transmission Date: 20211014
  Serious: Yes (Life-Threatening, Hospitalization)
  Sender: FDA-Public Use
  Company Number: DE-MYLANLABS-2021M1051246

PATIENT
  Age: 97 Year
  Sex: Female

DRUGS (5)
  1. PHENPROCOUMON MYLAN [Suspect]
     Active Substance: PHENPROCOUMON
     Indication: PRODUCT USED FOR UNKNOWN INDICATION
     Dosage: 3 MG, NACH PLAN, TABLETTEN
     Route: 048
  2. RAMIPRIL. [Concomitant]
     Active Substance: RAMIPRIL
     Dosage: 10 MG, 0.5?0?0?0, TABLETTEN
     Route: 048
  3. XIPAMID [Suspect]
     Active Substance: XIPAMIDE
     Indication: PRODUCT USED FOR UNKNOWN INDICATION
     Dosage: 10 MG, BEI BEDARF, TABLETTEN
     Route: 048
  4. TORASEMIDE [Suspect]
     Active Substance: TORSEMIDE
     Indication: PRODUCT USED FOR UNKNOWN INDICATION
     Dosage: 50 MG, 1?0?0?0, TABLETTEN
     Route: 048
  5. LEVOTHYROXIN [Concomitant]
     Active Substance: LEVOTHYROXINE
     Dosage: 125 ?G, 0.5?0?0?0, TABLETTEN
     Route: 048

REACTIONS (8)
  - Electrolyte imbalance [Unknown]
  - Sepsis [Unknown]
  - Acute abdomen [Unknown]
  - Abdominal pain [Unknown]
  - General physical health deterioration [Unknown]
  - Gastrointestinal haemorrhage [Unknown]
  - Dehydration [Unknown]
  - Condition aggravated [Unknown]
